FAERS Safety Report 8083732-6 (Version None)
Quarter: 2012Q1

REPORT INFORMATION
  Report Type: 
  Country: None (occurrence: None)
  Receive Date: 20120127
  Receipt Date: 20110120
  Transmission Date: 20120608
  Serious: No
  Sender: FDA-Public Use
  Company Number: US-ABBOTT-11P-163-0700155-00

PATIENT
  Sex: Female
  Weight: 73.094 kg

DRUGS (9)
  1. METHOTREXATE [Concomitant]
     Indication: RHEUMATOID ARTHRITIS
  2. CLARINEX [Concomitant]
     Indication: HYPERSENSITIVITY
  3. LORTAB [Concomitant]
     Indication: PAIN
  4. UNKNOWN CHOLESTEROL MEDICATION [Concomitant]
     Indication: BLOOD CHOLESTEROL INCREASED
  5. ESCITALOPRAM [Concomitant]
     Indication: DEPRESSION
  6. HUMIRA [Suspect]
     Indication: RHEUMATOID ARTHRITIS
     Dates: start: 20101001
  7. ZYLOPRAM [Concomitant]
     Indication: GLAUCOMA
     Route: 047
  8. PLAQUENIL [Concomitant]
     Indication: OSTEOARTHRITIS
  9. OMEPRAZOLE [Concomitant]
     Indication: GASTROOESOPHAGEAL REFLUX DISEASE

REACTIONS (1)
  - ALOPECIA [None]
